FAERS Safety Report 26019953 (Version 1)
Quarter: 2025Q4

REPORT INFORMATION
  Report Type: Spontaneous
  Country: EU (occurrence: EU)
  Receive Date: 20251110
  Receipt Date: 20251110
  Transmission Date: 20260118
  Serious: Yes (Congenital Anomaly)
  Sender: ACCORD
  Company Number: None

PATIENT
  Age: 15 Month
  Sex: Female

DRUGS (1)
  1. METHOTREXATE [Suspect]
     Active Substance: METHOTREXATE
     Indication: Ectopic pregnancy
     Dates: start: 20230908, end: 20240402

REACTIONS (3)
  - Neurodevelopmental delay [Not Recovered/Not Resolved]
  - Microcephaly [Not Recovered/Not Resolved]
  - Maternal exposure before pregnancy [Not Recovered/Not Resolved]

NARRATIVE: CASE EVENT DATE: 20250101
